FAERS Safety Report 4667576-0 (Version None)
Quarter: 2005Q2

REPORT INFORMATION
  Report Type: 
  Country: None (occurrence: None)
  Receive Date: 20050520
  Receipt Date: 20041203
  Transmission Date: 20051028
  Serious: Yes (Other)
  Sender: FDA-Public Use
  Company Number: PHEH2004US12963

PATIENT
  Age: 80 Year
  Sex: Female

DRUGS (6)
  1. ZOMETA [Suspect]
     Indication: METASTASES TO BONE
     Dosage: 4 MG, UNK
     Dates: start: 20020410, end: 20041111
  2. HERCEPTIN [Concomitant]
  3. CALCIUM GLUCONATE [Concomitant]
     Dates: start: 20020729
  4. DEXAMETHASONE TABLETS USP (NGX) [Concomitant]
  5. FEMARA [Concomitant]
     Indication: BREAST CANCER
     Dates: start: 20040203
  6. CHROMAGEN FORTE [Concomitant]
     Dates: start: 20020219

REACTIONS (7)
  - BACTERIAL INFECTION [None]
  - HYPERPLASIA [None]
  - JAW DISORDER [None]
  - OSTEONECROSIS [None]
  - PRIMARY SEQUESTRUM [None]
  - STOMATITIS NECROTISING [None]
  - TOOTH EXTRACTION [None]
